FAERS Safety Report 7112302-9 (Version None)
Quarter: 2010Q4

REPORT INFORMATION
  Report Type: 
  Country: None (occurrence: None)
  Receive Date: 20101119
  Receipt Date: 20100607
  Transmission Date: 20110411
  Serious: No
  Sender: FDA-Public Use
  Company Number: A0865758A

PATIENT
  Age: 79 Year
  Sex: Male

DRUGS (3)
  1. AVODART [Suspect]
     Dosage: .5MG PER DAY
     Route: 048
     Dates: start: 20100424, end: 20100521
  2. RAPAFLO [Concomitant]
  3. IRON [Concomitant]

REACTIONS (1)
  - DIZZINESS [None]
